FAERS Safety Report 5275821-6 (Version None)
Quarter: 2007Q1

REPORT INFORMATION
  Report Type: 
  Country: None (occurrence: None)
  Receive Date: 20070326
  Receipt Date: 20070321
  Transmission Date: 20070707
  Serious: Yes (Other)
  Sender: FDA-Public Use
  Company Number: DEWYE117621MAR07

PATIENT
  Sex: Female

DRUGS (2)
  1. VENLAFAXINE HCL [Suspect]
     Dosage: UNKNOWN
     Dates: start: 20040101
  2. LEPONEX [Concomitant]

REACTIONS (2)
  - BREAST CANCER [None]
  - CONCOMITANT DISEASE PROGRESSION [None]
